FAERS Safety Report 6420278-2 (Version None)
Quarter: 2009Q4

REPORT INFORMATION
  Report Type: 
  Country: None (occurrence: None)
  Receive Date: 20091029
  Receipt Date: 20091020
  Transmission Date: 20100525
  Serious: Yes (Other)
  Sender: FDA-Public Use
  Company Number: DE-B.I. PHARMACEUTICALS,INC./RIDGEFIELD-2009-DE-06594DE

PATIENT
  Age: 62 Year
  Sex: Male
  Weight: 95 kg

DRUGS (4)
  1. MOBEC 15 MG TABLETTEN [Suspect]
     Indication: BACK PAIN
     Dosage: 15 MG
     Route: 048
  2. MICARDIS HCT [Suspect]
  3. CONCOR [Suspect]
     Indication: CARDIAC VALVE DISEASE
  4. MARCUMAR [Concomitant]

REACTIONS (5)
  - BLOOD PRESSURE SYSTOLIC INCREASED [None]
  - HYPONATRAEMIC SYNDROME [None]
  - MALAISE [None]
  - PALPITATIONS [None]
  - RENAL DISORDER [None]
